FAERS Safety Report 8407093-5 (Version None)
Quarter: 2012Q2

REPORT INFORMATION
  Report Type: 
  Country: None (occurrence: None)
  Receive Date: 20120604
  Receipt Date: 20120522
  Transmission Date: 20120825
  Serious: Yes (Death)
  Sender: FDA-Public Use
  Company Number: US-SANOFI-AVENTIS-2012SA036475

PATIENT
  Age: 77 Year
  Sex: Male
  Weight: 78.5 kg

DRUGS (10)
  1. LUPRON [Concomitant]
     Indication: PROSTATE CANCER
     Dosage: 1 IN 3 M
     Route: 042
     Dates: start: 20090918
  2. PRINIVIL [Concomitant]
  3. CALCIUM [Concomitant]
  4. BLINDED THERAPY [Suspect]
     Indication: PROSTATE CANCER
     Route: 048
     Dates: start: 20120509
  5. ALL OTHER THERAPEUTIC PRODUCTS [Concomitant]
  6. VITAMIN D [Concomitant]
  7. DOCETAXEL [Suspect]
     Indication: PROSTATE CANCER
     Route: 041
     Dates: start: 20120508, end: 20120508
  8. DEXAMETHASONE [Concomitant]
     Indication: PROSTATE CANCER
     Dosage: X 3
     Route: 048
     Dates: start: 20120507
  9. AMBIEN [Concomitant]
  10. PREDNISONE [Concomitant]
     Indication: PROSTATE CANCER
     Route: 048
     Dates: start: 20120131

REACTIONS (1)
  - DEATH [None]
